FAERS Safety Report 8039948-8 (Version None)
Quarter: 2012Q1

REPORT INFORMATION
  Report Type: 
  Country: None (occurrence: None)
  Receive Date: 20120111
  Receipt Date: 20111221
  Transmission Date: 20120608
  Serious: No
  Sender: FDA-Public Use
  Company Number: US-AMGEN-USASP2011068243

PATIENT
  Sex: Female

DRUGS (3)
  1. WELLBUTRIN [Concomitant]
  2. NORTRIPTYLINE HCL [Concomitant]
  3. ENBREL [Suspect]
     Indication: PRODUCT USED FOR UNKNOWN INDICATION
     Dosage: 50 MG, QWK
     Dates: start: 20080201

REACTIONS (1)
  - OPEN WOUND [None]
